FAERS Safety Report 7024227-8 (Version None)
Quarter: 2010Q3

REPORT INFORMATION
  Report Type: 
  Country: None (occurrence: None)
  Receive Date: 20100929
  Receipt Date: 20100920
  Transmission Date: 20110219
  Serious: Yes (Other)
  Sender: FDA-Public Use
  Company Number: 2010SP050451

PATIENT
  Age: 32 Year
  Sex: Female

DRUGS (2)
  1. PEG-INTRON [Suspect]
     Indication: HEPATITIS C
     Dosage: SC
     Route: 058
     Dates: start: 20100816
  2. RIBAVIRIN [Suspect]
     Indication: HEPATITIS C
     Dosage: PO
     Route: 048
     Dates: start: 20100816

REACTIONS (8)
  - ANXIETY [None]
  - CHILLS [None]
  - FATIGUE [None]
  - GOITRE [None]
  - PANIC ATTACK [None]
  - PYREXIA [None]
  - THYROID CYST [None]
  - THYROID NEOPLASM [None]
